FAERS Safety Report 7756518-7 (Version None)
Quarter: 2011Q3

REPORT INFORMATION
  Report Type: 
  Country: None (occurrence: None)
  Receive Date: 20110826
  Receipt Date: 20110811
  Transmission Date: 20111222
  Serious: Yes (Hospitalization)
  Sender: FDA-Public Use
  Company Number: 2011PROUSA00505

PATIENT
  Age: 76 Year
  Sex: Male
  Weight: 153.4 kg

DRUGS (14)
  1. PERCOCET [Concomitant]
  2. HYDROCHLOROTHIAZIDE [Concomitant]
  3. DILTIAZEM [Concomitant]
  4. LUPRON [Concomitant]
  5. SYMBICORT [Concomitant]
  6. PREDNAX (PREDNISONE) [Concomitant]
  7. SPIRIVA [Concomitant]
  8. MICONAZOEL NITRATE (MICONAZOLE NITRATE) [Concomitant]
  9. TRAZODONE HCL [Concomitant]
  10. XOPENEX (LEVOSALBUTAMOL HYDROCHLORIDE) [Concomitant]
  11. LASIX [Concomitant]
  12. LABETALOL HCL [Concomitant]
  13. PROVENGE [Suspect]
     Indication: PROSTATE CANCER METASTATIC
     Dosage: 250 ML, SINGLE, INTRAVENOUS
     Route: 042
     Dates: start: 20110711, end: 20110711
  14. LEVOFLOXACIN [Concomitant]

REACTIONS (11)
  - ANAEMIA [None]
  - PLATELET COUNT DECREASED [None]
  - FLUID OVERLOAD [None]
  - PAIN [None]
  - HYPOKALAEMIA [None]
  - CHRONIC OBSTRUCTIVE PULMONARY DISEASE [None]
  - RASH [None]
  - CHEST PAIN [None]
  - SKIN CANDIDA [None]
  - URINARY TRACT INFECTION [None]
  - ELEPHANTIASIS NOSTRAS VERRUCOSA [None]
